FAERS Safety Report 23512587 (Version 1)
Quarter: 2024Q1

REPORT INFORMATION
  Report Type: Spontaneous
  Country: US (occurrence: US)
  Receive Date: 20240212
  Receipt Date: 20240212
  Transmission Date: 20240410
  Serious: No
  Sender: FDA-Public Use
  Company Number: US-AERIE PHARMACEUTICALS-US-2023-000028

PATIENT
  Sex: Male
  Weight: 88.435 kg

DRUGS (1)
  1. RHOPRESSA [Suspect]
     Active Substance: NETARSUDIL MESYLATE
     Indication: Open angle glaucoma
     Dosage: 1 GTT, QHS, OD
     Route: 047
     Dates: start: 2015

REACTIONS (6)
  - Blepharal pigmentation [Not Recovered/Not Resolved]
  - Expired product administered [Unknown]
  - Eyelid exfoliation [Not Recovered/Not Resolved]
  - Eye irritation [Not Recovered/Not Resolved]
  - Eye pruritus [Not Recovered/Not Resolved]
  - Conjunctival hyperaemia [Not Recovered/Not Resolved]

NARRATIVE: CASE EVENT DATE: 20150101
